FAERS Safety Report 15156424 (Version 2)
Quarter: 2018Q3

REPORT INFORMATION
  Report Type: Spontaneous
  Country: US (occurrence: US)
  Receive Date: 20180717
  Receipt Date: 20180720
  Transmission Date: 20181010
  Serious: Yes (Hospitalization)
  Sender: FDA-Public Use
  Company Number: US-ACTELION-A-US2018-175604

PATIENT
  Age: 23 Month
  Sex: Male
  Weight: 9.7 kg

DRUGS (1)
  1. VENTAVIS [Suspect]
     Active Substance: ILOPROST
     Indication: PULMONARY ARTERIAL HYPERTENSION
     Dosage: 5 MCG, PRN
     Route: 055

REACTIONS (2)
  - Catheterisation cardiac [Unknown]
  - Pulmonary vein stenosis [Unknown]

NARRATIVE: CASE EVENT DATE: 20180712
